FAERS Safety Report 10718587 (Version 2)
Quarter: 2015Q1

REPORT INFORMATION
  Report Type: Spontaneous
  Country: US (occurrence: US)
  Receive Date: 20150119
  Receipt Date: 20150119
  Transmission Date: 20150721
  Serious: No
  Sender: FDA-Public Use
  Company Number: US-UNITED THERAPEUTICS-UNT-2014-001477

PATIENT
  Age: 68 Year
  Sex: Male
  Weight: 74.83 kg

DRUGS (2)
  1. MACITENTAN [Concomitant]
     Active Substance: MACITENTAN
     Indication: PRODUCT USED FOR UNKNOWN INDICATION
  2. REMODULIN [Suspect]
     Active Substance: TREPROSTINIL
     Indication: COR PULMONALE CHRONIC
     Dosage: .01 ?G/KG, CONTINUING
     Route: 058
     Dates: start: 20140430

REACTIONS (2)
  - Drug administration error [Unknown]
  - Headache [Unknown]

NARRATIVE: CASE EVENT DATE: 20140526
